FAERS Safety Report 6972278-1 (Version None)
Quarter: 2010Q3

REPORT INFORMATION
  Report Type: 
  Country: None (occurrence: None)
  Receive Date: 20100909
  Receipt Date: 20100826
  Transmission Date: 20110219
  Serious: Yes (Hospitalization)
  Sender: FDA-Public Use
  Company Number: BR-ELI_LILLY_AND_COMPANY-BR201007005491

PATIENT
  Sex: Female
  Weight: 62 kg

DRUGS (8)
  1. FORTEO [Suspect]
     Indication: OSTEOPOROSIS
     Dosage: 20 UG, DAILY (1/D)
     Route: 058
     Dates: start: 20080908, end: 20100101
  2. FORTEO [Suspect]
     Dosage: 20 UG, DAILY (1/D)
     Route: 058
     Dates: start: 20100101
  3. XALATAN [Concomitant]
     Indication: GLAUCOMA
  4. PANTOPRAZOLE SODIUM [Concomitant]
     Indication: ABDOMINAL PAIN UPPER
  5. LOSARTAN POTASSICO [Concomitant]
     Indication: HYPERTENSION
  6. CILOSTAZOL [Concomitant]
     Indication: CARDIOVASCULAR DISORDER
  7. ASPIRINE [Concomitant]
     Indication: CARDIOVASCULAR DISORDER
  8. ATLANSIL /00133101/ [Concomitant]

REACTIONS (3)
  - CARDIOVASCULAR DISORDER [None]
  - HOSPITALISATION [None]
  - WOUND [None]
